FAERS Safety Report 5622336-9 (Version None)
Quarter: 2008Q1

REPORT INFORMATION
  Report Type: 
  Country: None (occurrence: None)
  Receive Date: 20080114
  Receipt Date: 20070619
  Transmission Date: 20080703
  Serious: Yes (Other)
  Sender: FDA-Public Use
  Company Number: A03200704024

PATIENT
  Age: 69 Year
  Sex: Female

DRUGS (4)
  1. PLAVIX [Suspect]
     Indication: ANGIOPLASTY
     Dosage: 75 MG QD -ORAL
     Route: 048
     Dates: start: 20070322
  2. PLAVIX [Suspect]
     Indication: CORONARY ARTERIAL STENT INSERTION
     Dosage: 75 MG QD -ORAL
     Route: 048
     Dates: start: 20070322
  3. ACETYLSALICYLIC ACID SRT [Concomitant]
  4. METOPROLOL SUCCINATE [Concomitant]

REACTIONS (1)
  - HEPATIC ENZYME INCREASED [None]
